FAERS Safety Report 6176284-9 (Version None)
Quarter: 2009Q2

REPORT INFORMATION
  Report Type: 
  Country: None (occurrence: None)
  Receive Date: 20090501
  Receipt Date: 20090428
  Transmission Date: 20091009
  Serious: Yes (Other)
  Sender: FDA-Public Use
  Company Number: D0061293A

PATIENT
  Sex: Female

DRUGS (5)
  1. ELONTRIL [Suspect]
     Indication: DEPRESSION
     Dosage: 150MG PER DAY
     Route: 048
     Dates: start: 20081028
  2. RISPERDAL [Concomitant]
     Dosage: 12MG UNKNOWN
     Route: 048
  3. LEVOTHYROXINE SODIUM [Concomitant]
     Dosage: 75UG UNKNOWN
     Route: 048
  4. ARSENICUM ALBUM [Concomitant]
     Route: 048
  5. ATOSIL [Concomitant]
     Route: 048

REACTIONS (12)
  - ANOREXIA [None]
  - ANXIETY [None]
  - BLOOD PRESSURE INCREASED [None]
  - CATARACT [None]
  - DEPRESSION [None]
  - FEELING HOT [None]
  - GLAUCOMA [None]
  - INTRAOCULAR PRESSURE INCREASED [None]
  - PANIC ATTACK [None]
  - RESTLESSNESS [None]
  - VISION BLURRED [None]
  - VISUAL IMPAIRMENT [None]
